FAERS Safety Report 5424978-2 (Version None)
Quarter: 2007Q3

REPORT INFORMATION
  Report Type: 
  Country: None (occurrence: None)
  Receive Date: 20070824
  Receipt Date: 20070821
  Transmission Date: 20080115
  Serious: Yes (Hospitalization)
  Sender: FDA-Public Use
  Company Number: B0483952A

PATIENT
  Sex: Female
  Weight: 35 kg

DRUGS (7)
  1. ZOVIRAX [Suspect]
     Indication: HERPES SIMPLEX
     Dosage: 175MG PER DAY
     Route: 042
     Dates: start: 20070809, end: 20070809
  2. VALTREX [Suspect]
     Indication: HERPES SIMPLEX
     Dosage: 500MG PER DAY
     Route: 048
     Dates: start: 20070809, end: 20070809
  3. FUROSEMIDE [Concomitant]
     Route: 048
  4. TRICHLORMETHIAZIDE [Concomitant]
     Dosage: 2MG TWICE PER DAY
     Route: 048
  5. OLMETEC [Concomitant]
     Dosage: 1 PER DAY
     Route: 048
  6. ADALAT [Concomitant]
     Dosage: 1 PER DAY
     Route: 048
  7. SIMAVASTATIN [Concomitant]
     Route: 048

REACTIONS (1)
  - HERPES SIMPLEX [None]
